FAERS Safety Report 20542225 (Version 1)
Quarter: 2022Q1

REPORT INFORMATION
  Report Type: Spontaneous
  Country: US (occurrence: None)
  Receive Date: 20220302
  Receipt Date: 20220302
  Transmission Date: 20220423
  Serious: Yes (Hospitalization)
  Sender: FDA-Public Use
  Company Number: 2022A085628

PATIENT
  Age: 902 Month
  Sex: Male

DRUGS (1)
  1. TUDORZA PRESSAIR [Suspect]
     Active Substance: ACLIDINIUM BROMIDE
     Indication: Chronic obstructive pulmonary disease
     Route: 055

REACTIONS (19)
  - COVID-19 [Unknown]
  - Anaemia [Unknown]
  - Wrong technique in device usage process [Unknown]
  - Incorrect dose administered by device [Unknown]
  - Extra dose administered [Unknown]
  - Dyspnoea [Unknown]
  - Incorrect dose administered [Unknown]
  - Mobility decreased [Unknown]
  - Memory impairment [Unknown]
  - Cardiac disorder [Unknown]
  - Fluid retention [Unknown]
  - Muscle atrophy [Unknown]
  - Device use issue [Unknown]
  - Insomnia [Unknown]
  - Gait disturbance [Unknown]
  - Mental disorder [Unknown]
  - Device delivery system issue [Unknown]
  - Dysphonia [Unknown]
  - Weight fluctuation [Unknown]

NARRATIVE: CASE EVENT DATE: 20201001
